FAERS Safety Report 9881053 (Version 2)
Quarter: 2014Q1

REPORT INFORMATION
  Report Type: Report from Study
  Country: AR (occurrence: AR)
  Receive Date: 20140207
  Receipt Date: 20140217
  Transmission Date: 20141002
  Serious: Yes (Hospitalization)
  Sender: FDA-Public Use
  Company Number: AR-ASTELLAS-2014US001180

PATIENT
  Age: 58 Year
  Sex: Male

DRUGS (4)
  1. ERLOTINIB TABLET [Suspect]
     Indication: LUNG NEOPLASM MALIGNANT
     Dosage: 150 MG, UID/QD
     Route: 048
     Dates: start: 20090409
  2. ERLOTINIB TABLET [Suspect]
     Dosage: 100 MG, UID/QD
     Route: 048
     Dates: start: 20110225
  3. ERLOTINIB TABLET [Suspect]
     Dosage: 100 MG, UID/QD
     Route: 048
     Dates: end: 20110131
  4. ERLOTINIB TABLET [Suspect]
     Dosage: 100 MG, UID/QD
     Route: 048

REACTIONS (10)
  - Cholecystitis acute [Recovered/Resolved]
  - Biliary tract disorder [Recovered/Resolved]
  - Cholelithiasis [Not Recovered/Not Resolved]
  - Anaemia [Unknown]
  - Lung disorder [Unknown]
  - Renal failure acute [Recovered/Resolved]
  - Sepsis [Recovered/Resolved]
  - Transaminases increased [Recovered/Resolved]
  - Blood alkaline phosphatase increased [Recovered/Resolved]
  - Rash [Recovering/Resolving]
